FAERS Safety Report 5020717-8 (Version None)
Quarter: 2006Q2

REPORT INFORMATION
  Report Type: 
  Country: None (occurrence: None)
  Receive Date: 20060601
  Receipt Date: 20060517
  Transmission Date: 20061013
  Serious: Yes (Other)
  Sender: FDA-Public Use
  Company Number: GXKR2006DE02783

PATIENT
  Age: 69 Year
  Sex: Male

DRUGS (1)
  1. RAMIPRIL + HYDROCHLOROTHIAZIDE (NGX) (HYDROCHLOROTHIAZIDE, RAMIPRIL) T [Suspect]
     Dosage: ORAL
     Route: 048

REACTIONS (8)
  - CONJUNCTIVITIS [None]
  - DRY EYE [None]
  - DRY MOUTH [None]
  - MEMORY IMPAIRMENT [None]
  - MUSCLE SPASMS [None]
  - PHARYNGITIS [None]
  - RENAL CYST [None]
  - RENAL PAIN [None]
